FAERS Safety Report 20423052 (Version 4)
Quarter: 2022Q2

REPORT INFORMATION
  Report Type: Spontaneous
  Country: CH (occurrence: CH)
  Receive Date: 20220203
  Receipt Date: 20220414
  Transmission Date: 20220721
  Serious: Yes (Hospitalization, Other)
  Sender: FDA-Public Use
  Company Number: CH-BAYER-2022A015336

PATIENT
  Age: 73 Year
  Sex: Female

DRUGS (3)
  1. CIPROFLOXACIN [Interacting]
     Active Substance: CIPROFLOXACIN
     Indication: Antibiotic therapy
     Dosage: 400 MG, BID
     Route: 042
  2. DULOXETINE [Interacting]
     Active Substance: DULOXETINE
     Indication: Depression
     Dosage: STARTED ON DAY 17 AT THE ICU AGAIN
     Route: 048
  3. TIGECYCLINE [Concomitant]
     Active Substance: TIGECYCLINE
     Indication: Antibiotic therapy
     Dosage: 50 MG, BID
     Route: 042

REACTIONS (5)
  - Depressed level of consciousness [Recovered/Resolved]
  - Labelled drug-drug interaction medication error [Recovered/Resolved]
  - Contraindicated product administered [Recovered/Resolved]
  - Drug-genetic interaction [Recovered/Resolved]
  - Drug interaction [Recovered/Resolved]
